FAERS Safety Report 6865481-2 (Version None)
Quarter: 2010Q3

REPORT INFORMATION
  Report Type: 
  Country: None (occurrence: None)
  Receive Date: 20100721
  Receipt Date: 20081111
  Transmission Date: 20110219
  Serious: No
  Sender: FDA-Public Use
  Company Number: US-PFIZER INC-2008035899

PATIENT
  Sex: Female
  Weight: 68 kg

DRUGS (7)
  1. CHANTIX [Suspect]
     Indication: SMOKING CESSATION THERAPY
     Dates: start: 20080312
  2. ZOLOFT [Suspect]
     Indication: DEPRESSION
  3. ULTRAM [Concomitant]
  4. DETROL LA [Concomitant]
     Indication: HYPERTONIC BLADDER
  5. TRAZODONE HYDROCHLORIDE [Concomitant]
  6. ZOCOR [Concomitant]
     Indication: BLOOD CHOLESTEROL INCREASED
  7. VALIUM [Concomitant]

REACTIONS (11)
  - ANGER [None]
  - ASTHENIA [None]
  - DEPRESSION [None]
  - DIZZINESS [None]
  - HEADACHE [None]
  - NAUSEA [None]
  - NERVOUSNESS [None]
  - THIRST [None]
  - VERTIGO [None]
  - VOMITING [None]
  - WEIGHT DECREASED [None]
